FAERS Safety Report 24782486 (Version 4)
Quarter: 2025Q3

REPORT INFORMATION
  Report Type: Report from Study
  Country: US (occurrence: US)
  Receive Date: 20241227
  Receipt Date: 20250803
  Transmission Date: 20251020
  Serious: Yes (Hospitalization)
  Sender: ALEXION PHARMACEUTICALS
  Company Number: US-ASTRAZENECA-202412USA019605US

PATIENT
  Age: 71 Year
  Sex: Male
  Weight: 77.6 kg

DRUGS (27)
  1. LYNPARZA [Suspect]
     Active Substance: OLAPARIB
     Indication: Adenocarcinoma
     Dosage: 300 MILLIGRAM, BID
     Dates: start: 20230803, end: 20230831
  2. LYNPARZA [Suspect]
     Active Substance: OLAPARIB
     Indication: Prostate cancer
     Dosage: 600 MILLIGRAM, BID
     Dates: start: 20230901, end: 20230915
  3. LYNPARZA [Suspect]
     Active Substance: OLAPARIB
     Dosage: 225 MILLIGRAM, BID
     Dates: start: 20231009, end: 20231026
  4. LYNPARZA [Suspect]
     Active Substance: OLAPARIB
     Dosage: 225 MILLIGRAM, BID
     Dates: start: 20231028, end: 20231124
  5. LYNPARZA [Suspect]
     Active Substance: OLAPARIB
     Dosage: 225 MILLIGRAM, BID
     Dates: start: 20231124, end: 20231221
  6. LYNPARZA [Suspect]
     Active Substance: OLAPARIB
     Dosage: 150 MILLIGRAM, BID
     Dates: start: 20231222, end: 20240104
  7. VUDALIMAB [Suspect]
     Active Substance: VUDALIMAB
     Indication: Adenocarcinoma
     Dosage: 10 MG/KG (TOTAL ADMINISTERED DOSE WAS 800 MG
     Dates: start: 20230803, end: 20230803
  8. VUDALIMAB [Suspect]
     Active Substance: VUDALIMAB
     Dosage: 10 MG/KG (TOTAL ADMINISTERED DOSE WAS 800 MG
     Dates: start: 20230818, end: 20230818
  9. VUDALIMAB [Suspect]
     Active Substance: VUDALIMAB
     Dosage: 10 MG/KG (TOTAL ADMINISTERED DOSE WAS 800 MG
     Dates: start: 20230901, end: 20230901
  10. VUDALIMAB [Suspect]
     Active Substance: VUDALIMAB
     Dosage: 10 MG/KG (TOTAL ADMINISTERED DOSE WAS 800 MG
     Dates: start: 20230915, end: 20230915
  11. VUDALIMAB [Suspect]
     Active Substance: VUDALIMAB
     Dosage: 10 MG/KG (TOTAL ADMINISTERED DOSE WAS 800 MG
     Dates: start: 20231027, end: 20231027
  12. VUDALIMAB [Suspect]
     Active Substance: VUDALIMAB
     Dosage: 10 MG/KG (TOTAL ADMINISTERED DOSE WAS 800 MG
     Dates: start: 20231110, end: 20231110
  13. VUDALIMAB [Suspect]
     Active Substance: VUDALIMAB
     Dosage: 10 MG/KG (TOTAL ADMINISTERED DOSE WAS 800 MG
     Dates: start: 20231222, end: 20231222
  14. VUDALIMAB [Suspect]
     Active Substance: VUDALIMAB
     Dosage: 10 MG/KG (TOTAL ADMINISTERED DOSE WAS 800 MG
     Dates: start: 20240105, end: 20240105
  15. ASCORBIC ACID [Concomitant]
     Active Substance: ASCORBIC ACID
     Route: 065
  16. ACETYLCARNITINE [Concomitant]
     Active Substance: ACETYLCARNITINE
     Route: 065
  17. ALPHA LIPOIC ACID [Concomitant]
     Active Substance: .ALPHA.-LIPOIC ACID
     Route: 065
  18. COENZYME Q10 [Concomitant]
     Active Substance: DIETARY SUPPLEMENT\UBIDECARENONE
     Route: 065
  19. PROBIOTICS NOS [Concomitant]
     Active Substance: PROBIOTICS NOS
     Route: 065
  20. ASPIRIN [Concomitant]
     Active Substance: ASPIRIN
     Route: 065
  21. GLUTATHIONE [Concomitant]
     Active Substance: GLUTATHIONE
     Route: 065
  22. FLUTICASONE PROPIONATE\SALMETEROL XINAFOATE [Concomitant]
     Active Substance: FLUTICASONE PROPIONATE\SALMETEROL XINAFOATE
     Route: 065
  23. ZOFRAN [Concomitant]
     Active Substance: ONDANSETRON HYDROCHLORIDE
     Route: 065
  24. COMPAZINE [Concomitant]
     Active Substance: PROCHLORPERAZINE MALEATE
     Route: 065
  25. LEVOTHYROXINE [Concomitant]
     Active Substance: LEVOTHYROXINE
     Route: 065
  26. VITAMIN D3 [Concomitant]
     Active Substance: CHOLECALCIFEROL
     Route: 065
  27. HERBALS\TURMERIC [Concomitant]
     Active Substance: HERBALS\TURMERIC
     Route: 065

REACTIONS (8)
  - Anaemia [Not Recovered/Not Resolved]
  - Hypotension [Unknown]
  - Fatigue [Unknown]
  - Weight decreased [Unknown]
  - Dizziness [Unknown]
  - Bone marrow disorder [Unknown]
  - Overdose [Unknown]
  - Underdose [Unknown]
